FAERS Safety Report 4380119-4 (Version None)
Quarter: 2004Q2

REPORT INFORMATION
  Report Type: 
  Country: None (occurrence: None)
  Receive Date: 20040616
  Receipt Date: 20040614
  Transmission Date: 20050107
  Serious: Yes (Death)
  Sender: FDA-Public Use
  Company Number: 04-06-0842

PATIENT
  Age: 47 Year
  Sex: Female

DRUGS (1)
  1. CLOZAPINE - IVAX PHARMACEUTICALS, INC. TABLETS [Suspect]
     Indication: BIPOLAR DISORDER
     Dosage: 50-100MG QD ORAL
     Route: 048
     Dates: start: 20040501, end: 20040601

REACTIONS (1)
  - ARRHYTHMIA [None]
